FAERS Safety Report 25987962 (Version 2)
Quarter: 2025Q4

REPORT INFORMATION
  Report Type: Spontaneous
  Country: US (occurrence: US)
  Receive Date: 20251103
  Receipt Date: 20251130
  Transmission Date: 20260118
  Serious: No
  Sender: STALLERGENES
  Company Number: US-STALCOR-2025-AER-02817

PATIENT
  Sex: Female

DRUGS (3)
  1. PALFORZIA [Suspect]
     Active Substance: PEANUT
     Indication: Food allergy
     Dosage: PRODUCT DISPENSED WHILE PATIENT^S MILITARY FAMILY WAS STATIONED OVERSEAS IN GERMANY.
     Route: 048
  2. PALFORZIA [Suspect]
     Active Substance: PEANUT
     Dosage: FIRST FILL OF MAINTENANCE DOSE AT 300MG DISPENSED IN REPORTING COUNTRY USA ON 17-OCT-2025
     Route: 048
  3. CONCERTA [Concomitant]
     Active Substance: METHYLPHENIDATE HYDROCHLORIDE
     Indication: Product used for unknown indication

REACTIONS (3)
  - Pharyngitis streptococcal [Unknown]
  - Oral pruritus [Unknown]
  - Therapy interrupted [Unknown]
